FAERS Safety Report 12799308 (Version 1)
Quarter: 2016Q3

REPORT INFORMATION
  Report Type: Spontaneous
  Country: US (occurrence: US)
  Receive Date: 20160930
  Receipt Date: 20160930
  Transmission Date: 20161109
  Serious: No
  Sender: FDA-Public Use
  Company Number: US-PFIZER INC-2016455821

PATIENT
  Age: 33 Year
  Sex: Female
  Weight: 82 kg

DRUGS (3)
  1. LYRICA [Suspect]
     Active Substance: PREGABALIN
     Indication: FIBROMYALGIA
     Dosage: 200 MG TABLET, 3X/DAY
     Route: 048
  2. NORCO [Concomitant]
     Active Substance: ACETAMINOPHEN\HYDROCODONE BITARTRATE
     Indication: POLYMYOSITIS
     Dosage: 10 MG, 4X/DAY
  3. ALBUTEROL. [Concomitant]
     Active Substance: ALBUTEROL
     Indication: BRONCHITIS CHRONIC
     Dosage: NEBULIZER
     Route: 055

REACTIONS (6)
  - Poor quality drug administered [Unknown]
  - Overdose [Unknown]
  - Insomnia [Unknown]
  - Product use issue [Unknown]
  - Drug ineffective [Unknown]
  - Product quality issue [Unknown]
